FAERS Safety Report 4947625-2 (Version None)
Quarter: 2006Q1

REPORT INFORMATION
  Report Type: 
  Country: None (occurrence: None)
  Receive Date: 20060320
  Receipt Date: 20060308
  Transmission Date: 20060701
  Serious: Yes (Hospitalization, Other)
  Sender: FDA-Public Use
  Company Number: NSADSS2002030337

PATIENT
  Age: 54 Year
  Sex: Female

DRUGS (19)
  1. REMICADE [Suspect]
     Route: 041
  2. REMICADE [Suspect]
     Route: 041
  3. REMICADE [Suspect]
     Indication: CROHN'S DISEASE
     Route: 041
  4. PREMARIN [Concomitant]
  5. PREDNISONE [Concomitant]
     Dates: start: 19930501
  6. MERCAPTOPURINE [Concomitant]
     Dates: start: 20010201
  7. DIPENTUM [Concomitant]
     Route: 048
  8. ATENOLOL [Concomitant]
     Route: 048
  9. LIPITOR [Concomitant]
  10. AMBIEN [Concomitant]
  11. PROTONIX [Concomitant]
  12. VITAMIN B6 [Concomitant]
  13. ATIVAN [Concomitant]
  14. IMDUR [Concomitant]
  15. VICODIN [Concomitant]
  16. VICODIN [Concomitant]
  17. ZOFRAN [Concomitant]
  18. DURAGESIC-100 [Concomitant]
     Route: 062
  19. ACTOS [Concomitant]

REACTIONS (3)
  - CHOLECYSTITIS [None]
  - DIABETES MELLITUS NON-INSULIN-DEPENDENT [None]
  - TUBERCULOSIS [None]
